FAERS Safety Report 5485893-1 (Version None)
Quarter: 2007Q4

REPORT INFORMATION
  Report Type: 
  Country: None (occurrence: None)
  Receive Date: 20071015
  Receipt Date: 20071010
  Transmission Date: 20080405
  Serious: Yes (Other)
  Sender: FDA-Public Use
  Company Number: FR-ROXANE LABORATORIES, INC-2007-BP-22445RO

PATIENT
  Age: 60 Year
  Sex: Male

DRUGS (1)
  1. ACETAMINOPHEN W/ CODEINE [Suspect]
     Indication: SELF-MEDICATION

REACTIONS (2)
  - DRUG TOXICITY [None]
  - HEPATIC CIRRHOSIS [None]
